FAERS Safety Report 14309898 (Version 1)
Quarter: 2017Q4

REPORT INFORMATION
  Report Type: Spontaneous
  Country: US (occurrence: US)
  Receive Date: 20171220
  Receipt Date: 20171220
  Transmission Date: 20180321
  Serious: Yes (Hospitalization)
  Sender: FDA-Public Use
  Company Number: None

PATIENT
  Age: 64 Year
  Sex: Female
  Weight: 56.7 kg

DRUGS (7)
  1. METHYLPRED 4MG PAK TRIGE [Suspect]
     Active Substance: METHYLPREDNISOLONE
     Indication: BACK PAIN
     Dosage: DOSE - DOSEPAK?FREQUENCY - VARIOUS
     Route: 048
     Dates: start: 20171120, end: 20171121
  2. ADVIL [Concomitant]
     Active Substance: IBUPROFEN
  3. METHYLPRED 4MG PAK TRIGE [Suspect]
     Active Substance: METHYLPREDNISOLONE
     Indication: INFLAMMATION
     Dosage: DOSE - DOSEPAK?FREQUENCY - VARIOUS
     Route: 048
     Dates: start: 20171120, end: 20171121
  4. ABILIFY [Concomitant]
     Active Substance: ARIPIPRAZOLE
  5. ONE A DAY VITAMINS [Concomitant]
  6. BABY ASPIRIN [Concomitant]
     Active Substance: ASPIRIN
  7. TRAZODONE [Concomitant]
     Active Substance: TRAZODONE HYDROCHLORIDE

REACTIONS (1)
  - Psychotic disorder [None]

NARRATIVE: CASE EVENT DATE: 20171121
